FAERS Safety Report 17069774 (Version 1)
Quarter: 2019Q4

REPORT INFORMATION
  Report Type: Report from Study
  Country: DE (occurrence: DE)
  Receive Date: 20191125
  Receipt Date: 20191125
  Transmission Date: 20200122
  Serious: Yes (Other)
  Sender: FDA-Public Use
  Company Number: DE-TEVA-2019-DE-1141450

PATIENT
  Age: 77 Year
  Sex: Male
  Weight: 71 kg

DRUGS (17)
  1. EFFENTORA [Concomitant]
     Active Substance: FENTANYL CITRATE
     Indication: ARTHRALGIA
     Dosage: 600 MICROGRAM
     Dates: start: 20171205, end: 20180102
  2. LAXOBERAL [Concomitant]
     Active Substance: SODIUM PICOSULFATE
     Indication: CONSTIPATION
     Dosage: 9999.99 UNK, AS NECESSARY
     Dates: start: 20170628
  3. MACROGOL [Concomitant]
     Active Substance: POLYETHYLENE GLYCOLS
     Indication: CONSTIPATION
     Dosage: 9999.99, UNK
     Dates: start: 20170419
  4. XGEVA [Concomitant]
     Active Substance: DENOSUMAB
     Indication: OSTEOLYSIS
     Dosage: 120 MG, QMO
     Dates: start: 20170125
  5. DEXAMETHASONE. [Suspect]
     Active Substance: DEXAMETHASONE
     Indication: PLASMA CELL MYELOMA
     Dosage: 20 MILLIGRAM
     Route: 065
     Dates: start: 20171120
  6. TORASEMID RATIOPHARM [Concomitant]
     Dosage: 20 MILLIGRAM, QD
     Dates: start: 20171127
  7. KYPROLIS [Suspect]
     Active Substance: CARFILZOMIB
     Indication: PLASMA CELL MYELOMA
     Dosage: 20 MILLIGRAM/SQ. METER
     Route: 042
     Dates: start: 20170508, end: 20170516
  8. KYPROLIS [Suspect]
     Active Substance: CARFILZOMIB
     Dosage: 56 MILLIGRAM/SQ. METER
     Route: 042
     Dates: start: 20171120
  9. LENALIDOMIDE [Suspect]
     Active Substance: LENALIDOMIDE
     Indication: PLASMA CELL MYELOMA
     Dosage: 25 MILLIGRAM
     Route: 065
     Dates: start: 20170508, end: 20171113
  10. FENTANYL. [Concomitant]
     Active Substance: FENTANYL
     Indication: ARTHRALGIA
     Dosage: 137 MG/H, QOD
     Dates: start: 20170405
  11. KYPROLIS [Suspect]
     Active Substance: CARFILZOMIB
     Dosage: 27 MILLIGRAM/SQ. METER
     Route: 042
     Dates: start: 20170522, end: 20171108
  12. CALCILAC [Concomitant]
     Active Substance: CALCIUM CARBONATE
     Indication: OSTEOLYSIS
     Dosage: 1254 MG, UNK
     Dates: start: 20170504
  13. GRASTOFIL [Concomitant]
     Active Substance: FILGRASTIM
     Dosage: 0.5 MILLILITER, QD
     Dates: start: 20170717, end: 20170722
  14. NOVAMINSULFON [Concomitant]
     Active Substance: METAMIZOLE
     Indication: ARTHRALGIA
     Dosage: 160 UNK, QID
     Dates: start: 20150323
  15. BISOPROLOL RATIOPHARM [Concomitant]
     Active Substance: BISOPROLOL
     Indication: PROPHYLAXIS
     Dosage: 9999.99 UNK
     Dates: start: 20180903
  16. DEXAMETHASONE. [Suspect]
     Active Substance: DEXAMETHASONE
     Dosage: 40 MILLIGRAM
     Route: 065
     Dates: start: 20170508, end: 20171114
  17. RAMIPRIL. [Concomitant]
     Active Substance: RAMIPRIL
     Indication: PROPHYLAXIS
     Dosage: 5 MILLIGRAM
     Dates: start: 20180903

REACTIONS (2)
  - Leukopenia [Recovered/Resolved]
  - Neutrophil count decreased [Recovered/Resolved]

NARRATIVE: CASE EVENT DATE: 20170821
